FAERS Safety Report 4403880-9 (Version None)
Quarter: 2004Q3

REPORT INFORMATION
  Report Type: 
  Country: None (occurrence: None)
  Receive Date: 20040719
  Receipt Date: 20040709
  Transmission Date: 20050211
  Serious: Yes (Life-Threatening, Hospitalization)
  Sender: FDA-Public Use
  Company Number: 2004-07-0322

PATIENT
  Age: 54 Year
  Sex: Male
  Weight: 72 kg

DRUGS (5)
  1. RIBARVIRIN  CAPSULES [Suspect]
     Indication: HEPATITIS C
     Dosage: ORAL
     Route: 048
     Dates: start: 20000803, end: 20031207
  2. INTERFERON INJECTABLE [Suspect]
     Indication: HEPATITIS C
     Dates: start: 20000803, end: 20031207
  3. CYCLOPHOSPHAMIDE [Concomitant]
  4. PREDNISONE [Concomitant]
  5. BACTRIM [Concomitant]

REACTIONS (4)
  - BLOOD LACTATE DEHYDROGENASE INCREASED [None]
  - CRYOGLOBULINAEMIA [None]
  - PANCYTOPENIA [None]
  - RENAL FAILURE [None]
